FAERS Safety Report 12275429 (Version 2)
Quarter: 2016Q2

REPORT INFORMATION
  Report Type: Spontaneous
  Country: US (occurrence: US)
  Receive Date: 20160415
  Receipt Date: 20160512
  Transmission Date: 20160815
  Serious: No
  Sender: FDA-Public Use
  Company Number: US-UCBSA-2015039159

PATIENT
  Sex: Male
  Weight: 96.16 kg

DRUGS (3)
  1. LOSARTAN. [Concomitant]
     Active Substance: LOSARTAN
     Indication: BLOOD PRESSURE MEASUREMENT
     Dosage: 100 MG ONCE
  2. NEUPRO [Suspect]
     Active Substance: ROTIGOTINE
     Indication: RESTLESS LEGS SYNDROME
     Dosage: 2 MG, UNK
     Dates: start: 201508, end: 201511
  3. NEUPRO [Suspect]
     Active Substance: ROTIGOTINE
     Dosage: 1 MG UNK
     Dates: start: 201511

REACTIONS (3)
  - Incorrect dose administered [Unknown]
  - Blood pressure increased [Recovering/Resolving]
  - Weight increased [Not Recovered/Not Resolved]

NARRATIVE: CASE EVENT DATE: 2015
